FAERS Safety Report 7880918-8 (Version None)
Quarter: 2011Q4

REPORT INFORMATION
  Report Type: 
  Country: None (occurrence: None)
  Receive Date: 20111101
  Receipt Date: 20111018
  Transmission Date: 20120403
  Serious: Yes (Congenital Anomaly)
  Sender: FDA-Public Use
  Company Number: GB-ARROW GEN-2011-10394

PATIENT
  Sex: Male
  Weight: 3.9 kg

DRUGS (5)
  1. AZATHIOPRINE [Suspect]
     Indication: CROHN'S DISEASE
     Dosage: 125 MG, DAILY
     Route: 064
     Dates: start: 20040101
  2. MIRTAZAPINE [Concomitant]
     Indication: DEPRESSION
     Dosage: 30 MG, DAILY
     Route: 064
     Dates: start: 20030101
  3. VALPROATE SODIUM [Concomitant]
     Indication: DEPRESSION
     Dosage: 269 MG, TID
     Route: 064
     Dates: start: 20050101
  4. FOLIC ACID (WATSON LABORATORIES) [Suspect]
     Indication: PRODUCT USED FOR UNKNOWN INDICATION
     Dosage: 5 MG, DAILY
     Route: 064
  5. FOLIC ACID [Concomitant]
     Indication: PRODUCT USED FOR UNKNOWN INDICATION
     Dosage: 5 MG, DAILY
     Route: 065

REACTIONS (6)
  - JOINT CONTRACTURE [None]
  - CRYPTORCHISM [None]
  - DEVELOPMENTAL DELAY [None]
  - XXYY SYNDROME [None]
  - ABNORMAL PALMAR/PLANTAR CREASES [None]
  - HYPOTONIA [None]
